FAERS Safety Report 6254157-0 (Version None)
Quarter: 2009Q2

REPORT INFORMATION
  Report Type: 
  Country: None (occurrence: None)
  Receive Date: 20090630
  Receipt Date: 20090630
  Transmission Date: 20091009
  Serious: Yes (Life-Threatening)
  Sender: FDA-Public Use
  Company Number: None

PATIENT
  Age: 51 Year
  Sex: Male
  Weight: 84.87 kg

DRUGS (1)
  1. FLUMAZENIL [Suspect]
     Indication: OVERDOSE
     Dosage: 0.5 MG ONE TIME ONLY IV BOLUS
     Route: 040
     Dates: start: 20090615, end: 20090615

REACTIONS (1)
  - CONVULSION [None]
